FAERS Safety Report 8348559-6 (Version None)
Quarter: 2012Q2

REPORT INFORMATION
  Report Type: 
  Country: None (occurrence: None)
  Receive Date: 20120509
  Receipt Date: 20120426
  Transmission Date: 20120825
  Serious: Yes (Death, Hospitalization, Other)
  Sender: FDA-Public Use
  Company Number: US-MYLANLABS-2009AC000051

PATIENT
  Sex: Male
  Weight: 97.52 kg

DRUGS (43)
  1. PROTONIX [Concomitant]
  2. AMBIEN [Concomitant]
  3. CHROMAGEN FORTE [Concomitant]
  4. CORTISPORIN [Concomitant]
  5. ALPRAZOLAM [Concomitant]
  6. NOVOLOG [Concomitant]
  7. ALLOPURINOL [Concomitant]
  8. COLCHICINE [Concomitant]
  9. PAXIL [Concomitant]
  10. POTASSIUM CHLORIDE [Concomitant]
  11. HYDROCODONE BITARTRATE [Concomitant]
  12. ASPIRIN [Concomitant]
  13. NIFEREX-150 FORTE [Concomitant]
  14. HYDROMET /01224801/ [Concomitant]
  15. TEMAZEPAM [Concomitant]
  16. TRAZODONE HCL [Concomitant]
  17. METHOTREXATE [Concomitant]
  18. HYDROCHLOROTHIAZIDE [Concomitant]
  19. GLUCOSAMINE [Concomitant]
  20. PREDNISONE TAB [Concomitant]
  21. LIPITOR [Concomitant]
  22. COZAAR [Concomitant]
  23. FOLIC ACID [Concomitant]
  24. LORTAB [Concomitant]
  25. PRILOSEC [Concomitant]
  26. POTASSIUM CHLORIDE [Concomitant]
  27. XANAX [Concomitant]
  28. DIGOXIN [Suspect]
     Route: 048
     Dates: start: 20020509, end: 20070507
  29. AUGMENTIN [Concomitant]
  30. FLOMAX [Concomitant]
  31. LASIX [Concomitant]
  32. AVANDIA [Concomitant]
  33. LEVOXYL [Concomitant]
  34. GLUCOTROL [Concomitant]
  35. PREDNISONE TAB [Concomitant]
  36. RISPERDAL [Concomitant]
  37. ATENOLOL [Concomitant]
  38. QUININE SULFATE [Concomitant]
  39. PROSCAR [Concomitant]
  40. GLUCOPHAGE [Concomitant]
  41. METFORMIN HCL [Concomitant]
  42. SYNTHROID [Concomitant]
  43. GLIPIZIDE [Concomitant]

REACTIONS (110)
  - ECONOMIC PROBLEM [None]
  - VOMITING [None]
  - PAIN IN EXTREMITY [None]
  - GOUTY ARTHRITIS [None]
  - TYPE V HYPERLIPIDAEMIA [None]
  - SYNCOPE [None]
  - ARTHRITIS [None]
  - MITRAL VALVE INCOMPETENCE [None]
  - ARTERIOSCLEROSIS CORONARY ARTERY [None]
  - CARDIAC MURMUR [None]
  - CHOLELITHIASIS [None]
  - FALL [None]
  - HYPERGLYCAEMIA [None]
  - NASAL CONGESTION [None]
  - POLYP [None]
  - TENDERNESS [None]
  - URINE OUTPUT DECREASED [None]
  - BRADYCARDIA [None]
  - ANAEMIA [None]
  - VARICOSE VEIN [None]
  - MUSCULAR WEAKNESS [None]
  - DIZZINESS [None]
  - DYSPEPSIA [None]
  - ATRIAL FIBRILLATION [None]
  - BUNDLE BRANCH BLOCK BILATERAL [None]
  - HALLUCINATION [None]
  - BURNING SENSATION [None]
  - HYPONATRAEMIA [None]
  - MYALGIA [None]
  - RASH [None]
  - ILL-DEFINED DISORDER [None]
  - FATIGUE [None]
  - HYPERTENSION [None]
  - ACTINIC KERATOSIS [None]
  - GENERALISED ANXIETY DISORDER [None]
  - MAGNESIUM METABOLISM DISORDER [None]
  - ENDOTRACHEAL INTUBATION [None]
  - POLYNEUROPATHY [None]
  - DECREASED APPETITE [None]
  - COLONOSCOPY ABNORMAL [None]
  - EPISTAXIS [None]
  - OCCULT BLOOD POSITIVE [None]
  - ASTHENIA [None]
  - DYSPNOEA [None]
  - DIABETES MELLITUS [None]
  - HYPOTHYROIDISM [None]
  - PERIPHERAL VASCULAR DISORDER [None]
  - CARDIAC ARREST [None]
  - RENAL FAILURE ACUTE [None]
  - BENIGN PROSTATIC HYPERPLASIA [None]
  - CONFUSIONAL STATE [None]
  - CONTUSION [None]
  - ECHOCARDIOGRAM ABNORMAL [None]
  - ELECTROCARDIOGRAM ABNORMAL [None]
  - HYPERKALAEMIA [None]
  - HYPOGLYCAEMIA [None]
  - RENAL CYST [None]
  - VENOUS INSUFFICIENCY [None]
  - OSTEOARTHRITIS [None]
  - INSOMNIA [None]
  - WEIGHT DECREASED [None]
  - BLOOD GLUCOSE INCREASED [None]
  - DYSPNOEA EXERTIONAL [None]
  - LYMPHOPENIA [None]
  - ABDOMINAL DISCOMFORT [None]
  - VARICES OESOPHAGEAL [None]
  - INJURY [None]
  - PNEUMONIA [None]
  - BACK PAIN [None]
  - OEDEMA PERIPHERAL [None]
  - CARDIOGENIC SHOCK [None]
  - LEFT VENTRICULAR HYPERTROPHY [None]
  - PLEURAL EFFUSION [None]
  - ABDOMINAL TENDERNESS [None]
  - CARDIAC PACEMAKER INSERTION [None]
  - CARDIOMEGALY [None]
  - COMPUTERISED TOMOGRAM ABNORMAL [None]
  - EAR INFECTION [None]
  - HELICOBACTER TEST POSITIVE [None]
  - MUSCLE SPASMS [None]
  - NORMOCHROMIC NORMOCYTIC ANAEMIA [None]
  - ULTRASOUND SCAN ABNORMAL [None]
  - NEUROPATHY PERIPHERAL [None]
  - OTITIS EXTERNA [None]
  - POLLAKIURIA [None]
  - HEPATOMEGALY [None]
  - RESPIRATORY FAILURE [None]
  - BREATH SOUNDS ABNORMAL [None]
  - BRONCHITIS [None]
  - FIBROMYALGIA [None]
  - LABORATORY TEST ABNORMAL [None]
  - MONOCYTOSIS [None]
  - UPPER LIMB FRACTURE [None]
  - VENTRICULAR EXTRASYSTOLES [None]
  - DEATH [None]
  - RHEUMATOID ARTHRITIS [None]
  - NAUSEA [None]
  - RENAL FAILURE [None]
  - DEPRESSION [None]
  - OEDEMA [None]
  - MALAISE [None]
  - ASCITES [None]
  - HAEMOGLOBIN DECREASED [None]
  - ARTHRALGIA [None]
  - CARDIOACTIVE DRUG LEVEL INCREASED [None]
  - DYSARTHRIA [None]
  - EXERCISE TOLERANCE DECREASED [None]
  - NUCLEAR MAGNETIC RESONANCE IMAGING ABNORMAL [None]
  - SINUSITIS [None]
  - X-RAY ABNORMAL [None]
